FAERS Safety Report 4459681-9 (Version None)
Quarter: 2004Q3

REPORT INFORMATION
  Report Type: 
  Country: None (occurrence: None)
  Receive Date: 20040923
  Receipt Date: 20040923
  Transmission Date: 20050211
  Serious: Yes (Hospitalization)
  Sender: FDA-Public Use
  Company Number: None

PATIENT
  Age: 81 Year
  Sex: Male
  Weight: 92.1 kg

DRUGS (4)
  1. CLOPIDOGREL [Suspect]
     Indication: CEREBROVASCULAR ACCIDENT PROPHYLAXIS
     Dosage: 75 MG PO ONCE DAILY
     Route: 048
     Dates: start: 20040609, end: 20040902
  2. ASPIRIN [Suspect]
     Dosage: 81MG, ONE TABL, ORAL
     Route: 048
     Dates: end: 20040902
  3. ATORVASTATIN CALCIUM [Concomitant]
  4. CARBAMAZEPINE [Concomitant]

REACTIONS (2)
  - GASTROINTESTINAL HAEMORRHAGE [None]
  - HAEMATEMESIS [None]
